FAERS Safety Report 9709219 (Version 2)
Quarter: 2014Q1

REPORT INFORMATION
  Report Type: Spontaneous
  Country: US (occurrence: US)
  Receive Date: 20131125
  Receipt Date: 20140208
  Transmission Date: 20141002
  Serious: No
  Sender: FDA-Public Use
  Company Number: US-009507513-1311USA010230

PATIENT
  Sex: Female
  Weight: 122.5 kg

DRUGS (6)
  1. OXYTROL FOR WOMEN [Suspect]
     Indication: NOCTURIA
     Dosage: UNK UNK, Q4D
     Route: 062
     Dates: start: 20131030, end: 20131130
  2. OXYTROL FOR WOMEN [Suspect]
     Indication: URINARY INCONTINENCE
  3. OXYTROL FOR WOMEN [Suspect]
     Indication: POLLAKIURIA
  4. LISINOPRIL [Concomitant]
     Indication: BLOOD PRESSURE
     Dosage: UNK, UNKNOWN
  5. SIMVASTATIN [Concomitant]
     Indication: BLOOD CHOLESTEROL
     Dosage: 10 MG, UNKNOWN
  6. HYDROCHLOROTHIAZIDE (+) TRIAMTERENE [Concomitant]
     Indication: BLOOD PRESSURE
     Dosage: UNK, UNKNOWN

REACTIONS (3)
  - Insomnia [Not Recovered/Not Resolved]
  - Somnolence [Not Recovered/Not Resolved]
  - Drug effect decreased [Unknown]
